FAERS Safety Report 16711410 (Version 2)
Quarter: 2020Q1

REPORT INFORMATION
  Report Type: Report from Study
  Country: US (occurrence: US)
  Receive Date: 20190816
  Receipt Date: 20200114
  Transmission Date: 20200409
  Serious: No
  Sender: FDA-Public Use
  Company Number: US-SA-2019SA219318

PATIENT
  Age: 18 Year
  Sex: Female

DRUGS (1)
  1. DUPILUMAB [Suspect]
     Active Substance: DUPILUMAB
     Indication: DERMATITIS ATOPIC
     Dosage: UNK UNK, 1X
     Route: 058
     Dates: start: 20190709, end: 20190709

REACTIONS (5)
  - Pyrexia [Not Recovered/Not Resolved]
  - Product prescribing error [Unknown]
  - Cough [Not Recovered/Not Resolved]
  - Product dose omission [Unknown]
  - Oropharyngeal pain [Not Recovered/Not Resolved]

NARRATIVE: CASE EVENT DATE: 20190802
